FAERS Safety Report 5631791-X (Version None)
Quarter: 2008Q1

REPORT INFORMATION
  Report Type: 
  Country: None (occurrence: None)
  Receive Date: 20080220
  Receipt Date: 20080214
  Transmission Date: 20080703
  Serious: Yes (Other)
  Sender: FDA-Public Use
  Company Number: PHHY2008JP00697

PATIENT
  Age: 90 Year
  Sex: Male

DRUGS (2)
  1. LUDIOMIL [Suspect]
     Route: 048
  2. CELECOXIB [Concomitant]

REACTIONS (2)
  - DELIRIUM [None]
  - RENAL DISORDER [None]
